FAERS Safety Report 5192785-4 (Version None)
Quarter: 2006Q4

REPORT INFORMATION
  Report Type: 
  Country: None (occurrence: None)
  Receive Date: 20061228
  Receipt Date: 20040319
  Transmission Date: 20070319
  Serious: No
  Sender: FDA-Public Use
  Company Number: US-GLAXOSMITHKLINE-A0503548A

PATIENT
  Age: 35 Year
  Sex: Female

DRUGS (6)
  1. FLONASE [Suspect]
     Dosage: 2SPR PER DAY
     Route: 045
     Dates: start: 20040101, end: 20040101
  2. CLARINEX [Concomitant]
  3. CLARITIN [Concomitant]
  4. BENADRYL [Concomitant]
  5. ASTELIN [Concomitant]
  6. ATROVENT [Concomitant]

REACTIONS (1)
  - EPISTAXIS [None]
